FAERS Safety Report 15486210 (Version 1)
Quarter: 2018Q4

REPORT INFORMATION
  Report Type: Not Available
  Country: US (occurrence: US)
  Receive Date: 20181011
  Receipt Date: 20181011
  Transmission Date: 20190205
  Serious: No
  Sender: FDA-Public Use
  Company Number: US-NEUROCRINE BIOSCIENCES INC.-2018NBI02883

PATIENT
  Sex: Female

DRUGS (9)
  1. DULOXETINE. [Concomitant]
     Active Substance: DULOXETINE
  2. METFORMIN [Concomitant]
     Active Substance: METFORMIN HYDROCHLORIDE
  3. ATENOLOL. [Concomitant]
     Active Substance: ATENOLOL
  4. OXCARBAZEPINE. [Concomitant]
     Active Substance: OXCARBAZEPINE
  5. ATORVASTATIN [Concomitant]
     Active Substance: ATORVASTATIN
  6. DIAZEPAM. [Concomitant]
     Active Substance: DIAZEPAM
  7. INGREZZA [Suspect]
     Active Substance: VALBENAZINE
     Indication: TARDIVE DYSKINESIA
     Route: 048
     Dates: start: 20180817, end: 2018
  8. LOSARTAN. [Concomitant]
     Active Substance: LOSARTAN
  9. POTASSIUM CHLORIDE. [Concomitant]
     Active Substance: POTASSIUM CHLORIDE

REACTIONS (1)
  - Malaise [Unknown]

NARRATIVE: CASE EVENT DATE: 2018
